FAERS Safety Report 11820928 (Version 1)
Quarter: 2015Q4

REPORT INFORMATION
  Report Type: Spontaneous
  Country: US (occurrence: US)
  Receive Date: 20151210
  Receipt Date: 20151210
  Transmission Date: 20160305
  Serious: No
  Sender: FDA-Public Use
  Company Number: US-JNJFOC-20150621159

PATIENT
  Sex: Female

DRUGS (11)
  1. IMBRUVICA [Suspect]
     Active Substance: IBRUTINIB
     Indication: CHRONIC LYMPHOCYTIC LEUKAEMIA
     Route: 048
     Dates: start: 20150213
  2. GABAPENTIN. [Concomitant]
     Active Substance: GABAPENTIN
  3. INVOKANA [Concomitant]
     Active Substance: CANAGLIFLOZIN
  4. VITAMINS [Concomitant]
     Active Substance: VITAMINS
  5. HUMALOG [Concomitant]
     Active Substance: INSULIN LISPRO
  6. TRILIPIX [Concomitant]
     Active Substance: FENOFIBRIC ACID
  7. CRESTOR [Concomitant]
     Active Substance: ROSUVASTATIN CALCIUM
  8. OMEPRAZOLE. [Concomitant]
     Active Substance: OMEPRAZOLE
  9. LEVOXYL [Concomitant]
     Active Substance: LEVOTHYROXINE SODIUM
  10. EVISTA [Concomitant]
     Active Substance: RALOXIFENE HYDROCHLORIDE
  11. VITAMIN D2 [Concomitant]
     Active Substance: ERGOCALCIFEROL

REACTIONS (2)
  - Joint stiffness [Unknown]
  - Diarrhoea [Unknown]

NARRATIVE: CASE EVENT DATE: 2015
